FAERS Safety Report 10429400 (Version 2)
Quarter: 2014Q3

REPORT INFORMATION
  Report Type: Spontaneous
  Country: CA (occurrence: CA)
  Receive Date: 20140904
  Receipt Date: 20140919
  Transmission Date: 20150326
  Serious: Yes (Other)
  Sender: FDA-Public Use
  Company Number: CA-BEH-2014044688

PATIENT
  Age: 71 Year
  Sex: Male
  Weight: 79 kg

DRUGS (4)
  1. TYLENOL [Concomitant]
     Active Substance: ACETAMINOPHEN
     Dates: start: 20140815
  2. NEURONTIN [Concomitant]
     Active Substance: GABAPENTIN
     Route: 048
  3. PRIVIGEN [Suspect]
     Active Substance: HUMAN IMMUNOGLOBULIN G
     Indication: PARANEOPLASTIC SYNDROME
     Dosage: 20 GM; 120 ML; 30 GM X 5 DAYS;START 23 ML/HR THEN 46 ML/HR; THEN 200 ML/HR; ONLY 1/2 DOSE INFUSED
     Route: 042
     Dates: start: 20140815, end: 20140815
  4. PRIVIGEN [Suspect]
     Active Substance: HUMAN IMMUNOGLOBULIN G
     Dosage: 10 GM;100 ML; 30 GM X 5 DAYS;START 23 ML/HR THEN 46 ML/HR; THEN 200 ML/HR
     Route: 042
     Dates: start: 20140815, end: 20140815

REACTIONS (13)
  - Adverse reaction [Recovered/Resolved]
  - Back pain [Recovered/Resolved]
  - Hypertension [Recovered/Resolved]
  - Headache [Recovered/Resolved]
  - Malaise [Recovered/Resolved]
  - Coordination abnormal [Recovered/Resolved]
  - Transfusion reaction [Recovered/Resolved]
  - Meningitis aseptic [Recovered/Resolved]
  - Tremor [Recovered/Resolved]
  - Musculoskeletal stiffness [Recovered/Resolved]
  - Pain in extremity [Recovered/Resolved]
  - Chills [Recovered/Resolved]
  - Drug intolerance [Recovered/Resolved]

NARRATIVE: CASE EVENT DATE: 20140815
